FAERS Safety Report 8849272 (Version 1)
Quarter: 2012Q4

REPORT INFORMATION
  Report Type: Spontaneous
  Country: US (occurrence: None)
  Receive Date: 20121018
  Receipt Date: 20121018
  Transmission Date: 20130627
  Serious: Yes (Other)
  Sender: FDA-Public Use
  Company Number: None

PATIENT
  Age: 56 Year
  Sex: Female

DRUGS (2)
  1. STELARA [Suspect]
     Indication: MS
     Route: 058
     Dates: start: 201204
  2. STELARA [Suspect]
     Indication: MS
     Dates: start: 201210

REACTIONS (1)
  - Treatment failure [None]
